FAERS Safety Report 8091361-3 (Version None)
Quarter: 2012Q1

REPORT INFORMATION
  Report Type: 
  Country: None (occurrence: None)
  Receive Date: 20120129
  Receipt Date: 20111029
  Transmission Date: 20120608
  Serious: No
  Sender: FDA-Public Use
  Company Number: US-ABBOTT-11P-163-0870418-00

PATIENT
  Sex: Male
  Weight: 74.456 kg

DRUGS (5)
  1. ^WATER PILL^ [Concomitant]
     Indication: PLEURAL EFFUSION
  2. PREDNISONE TAB [Concomitant]
     Indication: RHEUMATOID ARTHRITIS
  3. UNKNOWN ANTIBIOTIC [Concomitant]
     Indication: FLUID RETENTION
  4. HUMIRA [Suspect]
     Indication: RHEUMATOID ARTHRITIS
  5. MULTIPLE UNKNOWN MEDICATION(S) [Concomitant]
     Indication: PRODUCT USED FOR UNKNOWN INDICATION

REACTIONS (4)
  - PAIN [None]
  - DRUG INEFFECTIVE [None]
  - POOR QUALITY DRUG ADMINISTERED [None]
  - INCORRECT STORAGE OF DRUG [None]
